FAERS Safety Report 17283297 (Version 1)
Quarter: 2020Q1

REPORT INFORMATION
  Report Type: Spontaneous
  Country: GB (occurrence: GB)
  Receive Date: 20200117
  Receipt Date: 20200117
  Transmission Date: 20200409
  Serious: Yes (Life-Threatening, Hospitalization)
  Sender: FDA-Public Use
  Company Number: GB-TEVA-2020-GB-1168507

PATIENT
  Age: 37 Year
  Sex: Male
  Weight: 145 kg

DRUGS (10)
  1. CYTARABINE. [Concomitant]
     Active Substance: CYTARABINE
  2. RITUXIMAB. [Concomitant]
     Active Substance: RITUXIMAB
  3. METHOTREXATE. [Suspect]
     Active Substance: METHOTREXATE
     Indication: BURKITT^S LYMPHOMA
     Dosage: 7000MG+820MG
     Route: 042
     Dates: start: 20191208, end: 20191209
  4. DOXORUBICIN [Concomitant]
     Active Substance: DOXORUBICIN
  5. ACICLOVIR [Concomitant]
     Active Substance: ACYCLOVIR
  6. CALCIUM FOLINATE [Concomitant]
     Active Substance: LEUCOVORIN CALCIUM
     Dosage: 3 HOURLY INTERVALS FOR FIRST 12 HOURS THEN 6 HOURLY.
  7. SODIUM HYDROGEN CARBONATE [Concomitant]
     Active Substance: SODIUM BICARBONATE
     Dates: start: 20191208, end: 20191208
  8. ONDANSETRON [Concomitant]
     Active Substance: ONDANSETRON
  9. CYCLOPHOSPHAMIDE. [Concomitant]
     Active Substance: CYCLOPHOSPHAMIDE
  10. VINCRISTINE [Concomitant]
     Active Substance: VINCRISTINE

REACTIONS (4)
  - Acute kidney injury [Recovering/Resolving]
  - Pleural effusion [Unknown]
  - Blood creatinine increased [Recovering/Resolving]
  - Fluid balance positive [Unknown]

NARRATIVE: CASE EVENT DATE: 20191209
